FAERS Safety Report 23320602 (Version 1)
Quarter: 2023Q4

REPORT INFORMATION
  Report Type: Report from Study
  Country: US (occurrence: US)
  Receive Date: 20231220
  Receipt Date: 20231220
  Transmission Date: 20240109
  Serious: Yes (Other)
  Sender: FDA-Public Use
  Company Number: US-ABBVIE-5546913

PATIENT
  Age: 54 Year
  Sex: Female
  Weight: 80 kg

DRUGS (2)
  1. HUMIRA [Suspect]
     Active Substance: ADALIMUMAB
     Indication: Rheumatoid arthritis
     Dosage: FORM STRENGTH: 40 MG CITRATE FREE?LAST ADMIN DATE: 2023
     Route: 058
     Dates: start: 20230125
  2. HUMIRA [Suspect]
     Active Substance: ADALIMUMAB
     Dosage: FORM STRENGTH: 40 MG CITRATE FREE
     Route: 058
     Dates: start: 20231114

REACTIONS (1)
  - Nerve compression [Recovered/Resolved]

NARRATIVE: CASE EVENT DATE: 20230301
